FAERS Safety Report 6534006-3 (Version None)
Quarter: 2010Q1

REPORT INFORMATION
  Report Type: 
  Country: None (occurrence: None)
  Receive Date: 20100112
  Receipt Date: 20100111
  Transmission Date: 20100710
  Serious: Yes (Death)
  Sender: FDA-Public Use
  Company Number: IL-ROCHE-678579

PATIENT
  Age: 35 Year
  Sex: Female

DRUGS (1)
  1. TAMIFLU [Suspect]
     Dosage: START DATE: JAN 2010
     Route: 048

REACTIONS (1)
  - INFLUENZA [None]
